FAERS Safety Report 22119679 (Version 1)
Quarter: 2023Q1

REPORT INFORMATION
  Report Type: Spontaneous
  Country: US (occurrence: US)
  Receive Date: 20230321
  Receipt Date: 20230321
  Transmission Date: 20230418
  Serious: Yes (Hospitalization)
  Sender: FDA-Public Use
  Company Number: US-MYLANLABS-2023M1029274

PATIENT
  Age: 41 Year
  Sex: Female

DRUGS (1)
  1. DOXORUBICIN [Suspect]
     Active Substance: DOXORUBICIN
     Indication: Rhabdomyosarcoma
     Dosage: UNK
     Route: 065

REACTIONS (5)
  - Peripartum cardiomyopathy [Unknown]
  - Left ventricular dysfunction [Unknown]
  - Coronary artery thrombosis [Unknown]
  - Cardiac ventricular thrombosis [Unknown]
  - Myocardial infarction [Unknown]
